FAERS Safety Report 17125126 (Version 1)
Quarter: 2019Q4

REPORT INFORMATION
  Report Type: Spontaneous
  Country: KR (occurrence: KR)
  Receive Date: 20191206
  Receipt Date: 20191206
  Transmission Date: 20200122
  Serious: Yes (Hospitalization, Other)
  Sender: FDA-Public Use
  Company Number: KR-009507513-1902KOR005008

PATIENT
  Age: 54 Year
  Sex: Male

DRUGS (20)
  1. LEVODOPA [Suspect]
     Active Substance: LEVODOPA
     Dosage: 1 DOSAGE FORM, QD
     Route: 048
     Dates: end: 201402
  2. MADOPAR [Suspect]
     Active Substance: BENSERAZIDE HYDROCHLORIDE\LEVODOPA
     Dosage: 1 DOSAGE FORM, QID
     Route: 048
     Dates: start: 201502
  3. MADOPAR [Suspect]
     Active Substance: BENSERAZIDE HYDROCHLORIDE\LEVODOPA
     Dosage: 1 DOSAGE FORM, TID
     Route: 048
     Dates: start: 2015
  4. SINEMET CR [Suspect]
     Active Substance: CARBIDOPA\LEVODOPA
     Indication: PARKINSON^S DISEASE
     Dosage: 1 TABLET, TID
     Route: 048
     Dates: start: 20080415, end: 20150129
  5. MIRAPEX [Suspect]
     Active Substance: PRAMIPEXOLE DIHYDROCHLORIDE
     Indication: PARKINSON^S DISEASE
     Dosage: 0.25 MILLIGRAM, TID
     Route: 048
     Dates: start: 20081204, end: 20090130
  6. MIRAPEX [Suspect]
     Active Substance: PRAMIPEXOLE DIHYDROCHLORIDE
     Dosage: 0.5 MILLIGRAM, QD
     Route: 048
     Dates: start: 20081204, end: 20090414
  7. DOMPERIDONE [Suspect]
     Active Substance: DOMPERIDONE
     Dosage: 10 MILLIGRAM, TID
     Route: 048
     Dates: start: 200812, end: 200907
  8. MOTILIUM M [Suspect]
     Active Substance: DOMPERIDONE MALEATE
     Dosage: 10 MILLIGRAM, QID
     Route: 048
     Dates: start: 200909, end: 201002
  9. MADOPAR [Suspect]
     Active Substance: BENSERAZIDE HYDROCHLORIDE\LEVODOPA
     Dosage: 1 DOSAGE FORM, QD
     Route: 048
     Dates: start: 201408
  10. LEVODOPA [Suspect]
     Active Substance: LEVODOPA
     Indication: PARKINSON^S DISEASE
     Dosage: 0.5 DOSAGE FORM, BID
     Route: 048
     Dates: start: 20081204
  11. MIRAPEX [Suspect]
     Active Substance: PRAMIPEXOLE DIHYDROCHLORIDE
     Indication: PARKINSON^S DISEASE
     Dosage: 0.125 MILLIGRAM, QD
     Route: 048
     Dates: start: 20081204, end: 20090115
  12. REQUIP [Suspect]
     Active Substance: ROPINIROLE HYDROCHLORIDE
     Indication: PARKINSON^S DISEASE
     Dosage: 4 MILLIGRAM, QD
     Route: 048
     Dates: start: 201001, end: 201501
  13. LEVODOPA [Suspect]
     Active Substance: LEVODOPA
     Dosage: 1 DOSAGE FORM, 5 TIMES PER DAY
     Route: 048
     Dates: start: 20081204
  14. MADOPAR [Suspect]
     Active Substance: BENSERAZIDE HYDROCHLORIDE\LEVODOPA
     Dosage: 0.5 DOSAGE FORM, TID
     Route: 048
     Dates: start: 201502
  15. MADOPAR [Suspect]
     Active Substance: BENSERAZIDE HYDROCHLORIDE\LEVODOPA
     Dosage: 1.5 DOSAGE FORM, TID
     Route: 048
     Dates: start: 2016
  16. REQUIP [Suspect]
     Active Substance: ROPINIROLE HYDROCHLORIDE
     Indication: PARKINSON^S DISEASE
     Dosage: 8 MILLIGRAM, QD
     Route: 048
     Dates: start: 20081204, end: 20090130
  17. LEVODOPA [Suspect]
     Active Substance: LEVODOPA
     Dosage: 1 DOSAGE FORM, TID
     Route: 048
     Dates: start: 20081204
  18. PK-MERZ [Concomitant]
     Active Substance: AMANTADINE
     Indication: PRODUCT USED FOR UNKNOWN INDICATION
     Dosage: 100 MILLIGRAM, BID
     Route: 048
     Dates: start: 201001, end: 201501
  19. LEVODOPA [Suspect]
     Active Substance: LEVODOPA
     Dosage: 1.5 DOSAGE FORM, QD
     Route: 048
     Dates: start: 20081204
  20. MOTILIUM M [Suspect]
     Active Substance: DOMPERIDONE MALEATE
     Dosage: 10 MILLIGRAM, TID
     Route: 048
     Dates: start: 201002, end: 2010

REACTIONS (13)
  - Impulse-control disorder [Recovering/Resolving]
  - Overdose [Unknown]
  - Dyskinesia [Recovering/Resolving]
  - Pain [Unknown]
  - Discomfort [Recovering/Resolving]
  - Poor quality sleep [Recovering/Resolving]
  - Dopamine dysregulation syndrome [Unknown]
  - Parkinson^s disease psychosis [Recovering/Resolving]
  - Urine flow decreased [Unknown]
  - Headache [Unknown]
  - Monoplegia [Recovering/Resolving]
  - Gambling disorder [Recovered/Resolved]
  - Gait disturbance [Unknown]

NARRATIVE: CASE EVENT DATE: 20130115
